FAERS Safety Report 6338824-6 (Version None)
Quarter: 2009Q3

REPORT INFORMATION
  Report Type: 
  Country: None (occurrence: None)
  Receive Date: 20090828
  Receipt Date: 20090522
  Transmission Date: 20100115
  Serious: Yes (Disabling)
  Sender: FDA-Public Use
  Company Number: 1-18560062

PATIENT
  Age: 56 Year
  Sex: Female

DRUGS (1)
  1. QUALAQUIN [Suspect]
     Dosage: ORAL
     Route: 048
     Dates: start: 20090519

REACTIONS (4)
  - DEAFNESS [None]
  - DIPLOPIA [None]
  - TINNITUS [None]
  - TREMOR [None]
